FAERS Safety Report 10716314 (Version 2)
Quarter: 2015Q1

REPORT INFORMATION
  Report Type: Not Available
  Country: FR (occurrence: FR)
  Receive Date: 20150116
  Receipt Date: 20150211
  Transmission Date: 20150721
  Serious: Yes (Hospitalization)
  Sender: FDA-Public Use
  Company Number: FR-BEH-2015047777

PATIENT
  Age: 51 Year
  Sex: Male

DRUGS (7)
  1. NEBIVOLOL [Concomitant]
     Active Substance: NEBIVOLOL
  2. POLARAMINE [Suspect]
     Active Substance: DEXCHLORPHENIRAMINE MALEATE
     Route: 042
     Dates: start: 20141102, end: 20141102
  3. HYDROCHLOROTHIAZIDE. [Concomitant]
     Active Substance: HYDROCHLOROTHIAZIDE
  4. LYRICA [Suspect]
     Active Substance: PREGABALIN
     Route: 048
     Dates: start: 20141102, end: 20141102
  5. IRBESARTAN. [Concomitant]
     Active Substance: IRBESARTAN
  6. PRIVIGEN [Suspect]
     Active Substance: HUMAN IMMUNOGLOBULIN G
     Route: 042
     Dates: start: 20141031
  7. TANGANIL [Suspect]
     Active Substance: ACETYLLEUCINE
     Route: 042
     Dates: start: 20141102, end: 20141102

REACTIONS (4)
  - Coma scale abnormal [Recovered/Resolved]
  - Generalised tonic-clonic seizure [Recovered/Resolved]
  - Pruritus generalised [Recovered/Resolved]
  - Vertigo [Recovered/Resolved]

NARRATIVE: CASE EVENT DATE: 20141102
